FAERS Safety Report 7513695-0 (Version None)
Quarter: 2011Q2

REPORT INFORMATION
  Report Type: 
  Country: None (occurrence: None)
  Receive Date: 20110531
  Receipt Date: 20110120
  Transmission Date: 20111010
  Serious: Yes (Hospitalization, Other)
  Sender: FDA-Public Use
  Company Number: US-BAYER-201039705NA

PATIENT
  Age: 21 Year
  Sex: Female
  Weight: 61 kg

DRUGS (12)
  1. LEXAPRO [Concomitant]
  2. IMITREX [Concomitant]
  3. REGLAN [Concomitant]
  4. AMBIEN CR [Concomitant]
  5. BIAXIN XL [Concomitant]
     Indication: RESPIRATORY DISORDER
     Dosage: 500 MG, UNK
     Dates: start: 20061006
  6. EXCEDRIN (MIGRAINE) [Concomitant]
  7. VISTARIL [Concomitant]
  8. YASMIN [Suspect]
     Indication: PREMENSTRUAL SYNDROME
  9. ACETAMINOPHEN [Concomitant]
  10. YASMIN [Suspect]
     Indication: CONTRACEPTION
     Dosage: UNK UNK, UNK
     Route: 048
     Dates: start: 20030217, end: 20070101
  11. IBUPROFEN [Concomitant]
  12. CORGARD [Concomitant]

REACTIONS (2)
  - ABDOMINAL PAIN [None]
  - BILIARY DYSKINESIA [None]
